FAERS Safety Report 15208953 (Version 8)
Quarter: 2021Q1

REPORT INFORMATION
  Report Type: Report from Study
  Country: PA (occurrence: PA)
  Receive Date: 20180727
  Receipt Date: 20210303
  Transmission Date: 20210419
  Serious: Yes (Hospitalization, Disabling, Other)
  Sender: FDA-Public Use
  Company Number: PHHY2017PA011163

PATIENT
  Age: 57 Year
  Sex: Female

DRUGS (7)
  1. VITAMIN D3 [Concomitant]
     Active Substance: CHOLECALCIFEROL
     Indication: PRODUCT USED FOR UNKNOWN INDICATION
     Dosage: 1 DF, QD
     Route: 048
  2. NATALIZUMAB [Concomitant]
     Active Substance: NATALIZUMAB
     Indication: PRODUCT USED FOR UNKNOWN INDICATION
     Dosage: UNK
     Route: 065
     Dates: start: 2014, end: 201501
  3. KEPPRA [Concomitant]
     Active Substance: LEVETIRACETAM
     Indication: SEIZURE
     Dosage: 500 MG
     Route: 065
  4. GILENYA [Suspect]
     Active Substance: FINGOLIMOD HYDROCHLORIDE
     Dosage: 0.5 MG, QD
     Route: 048
     Dates: start: 20160525
  5. FOLIC ACID. [Concomitant]
     Active Substance: FOLIC ACID
     Indication: PRODUCT USED FOR UNKNOWN INDICATION
     Route: 065
  6. XARELTO [Concomitant]
     Active Substance: RIVAROXABAN
     Indication: COAGULOPATHY
     Dosage: 20 MG, UNK
     Route: 065
  7. GILENYA [Suspect]
     Active Substance: FINGOLIMOD HYDROCHLORIDE
     Indication: MULTIPLE SCLEROSIS
     Dosage: 0.5 MG, UNK
     Route: 065
     Dates: start: 2015

REACTIONS (34)
  - Foot fracture [Unknown]
  - Muscle spasticity [Not Recovered/Not Resolved]
  - Osteoarthritis [Unknown]
  - Depressed mood [Unknown]
  - Dyspnoea [Recovered/Resolved]
  - Limb discomfort [Unknown]
  - Venous thrombosis limb [Unknown]
  - Balance disorder [Unknown]
  - Gait spastic [Unknown]
  - Hypotonia [Unknown]
  - Malaise [Unknown]
  - Gait inability [Unknown]
  - Lymphocyte count decreased [Not Recovered/Not Resolved]
  - Peripheral swelling [Unknown]
  - Blood test abnormal [Unknown]
  - Grip strength decreased [Not Recovered/Not Resolved]
  - Musculoskeletal stiffness [Unknown]
  - Mobility decreased [Unknown]
  - Muscular weakness [Unknown]
  - Fall [Unknown]
  - Hypoaesthesia [Not Recovered/Not Resolved]
  - Skin lesion [Unknown]
  - Pulmonary embolism [Unknown]
  - Ankle fracture [Not Recovered/Not Resolved]
  - Oedema peripheral [Unknown]
  - Chest discomfort [Recovered/Resolved]
  - Seizure [Unknown]
  - Constipation [Unknown]
  - Drug interaction [Unknown]
  - Dyspnoea [Unknown]
  - Gait disturbance [Not Recovered/Not Resolved]
  - Urinary incontinence [Unknown]
  - Agitation [Unknown]
  - Movement disorder [Unknown]

NARRATIVE: CASE EVENT DATE: 201807
